FAERS Safety Report 4546112-3 (Version None)
Quarter: 2005Q1

REPORT INFORMATION
  Report Type: 
  Country: None (occurrence: None)
  Receive Date: 20050103
  Receipt Date: 20041220
  Transmission Date: 20050727
  Serious: Yes (Other)
  Sender: FDA-Public Use
  Company Number: 200416152BCC

PATIENT
  Age: 29 Year
  Sex: Male

DRUGS (1)
  1. ALEVE SINUS + HEADACHE CAPLETS (NAPROXEN SODIUM W/ PSEUDOEPHEDRINE HCL [Suspect]
     Indication: NASOPHARYNGITIS
     Dosage: 120/220 MG, QD, ORAL
     Route: 048
     Dates: start: 20041217, end: 20041218

REACTIONS (4)
  - ARRHYTHMIA [None]
  - DRUG INEFFECTIVE [None]
  - DYSPNOEA [None]
  - PALPITATIONS [None]
